FAERS Safety Report 25209089 (Version 1)
Quarter: 2025Q2

REPORT INFORMATION
  Report Type: Spontaneous
  Country: US (occurrence: None)
  Receive Date: 20250417
  Receipt Date: 20250417
  Transmission Date: 20250717
  Serious: Yes (Disabling, Other)
  Sender: FDA-CTU
  Company Number: None

PATIENT
  Age: 6 Year
  Sex: Male
  Weight: 18 kg

DRUGS (3)
  1. FENTANYL [Suspect]
     Active Substance: FENTANYL
     Indication: Myringotomy
     Dates: start: 20250410, end: 20250410
  2. VITAMIN D NOS [Suspect]
     Active Substance: CHOLECALCIFEROL\ERGOCALCIFEROL
  3. Multi vitamin w/ Iron [Concomitant]

REACTIONS (13)
  - Abnormal behaviour [None]
  - Hallucination [None]
  - Screaming [None]
  - Crying [None]
  - Aggression [None]
  - Vomiting [None]
  - Diarrhoea [None]
  - Pyrexia [None]
  - Lethargy [None]
  - Eating disorder [None]
  - Weight decreased [None]
  - Product administered to patient of inappropriate age [None]
  - Gastroenteritis viral [None]

NARRATIVE: CASE EVENT DATE: 20250410
